FAERS Safety Report 11814438 (Version 1)
Quarter: 2015Q4

REPORT INFORMATION
  Report Type: Spontaneous
  Country: BR (occurrence: None)
  Receive Date: 20151208
  Receipt Date: 20151208
  Transmission Date: 20160305
  Serious: Yes (Hospitalization, Other)
  Sender: FDA-Public Use
  Company Number: 2015-ALVOGEN-020046

PATIENT
  Age: 83 Year
  Sex: Female
  Weight: 65 kg

DRUGS (6)
  1. ATACAND COMB [Suspect]
     Active Substance: CANDESARTAN CILEXETIL\FELODIPINE
     Indication: BLOOD PRESSURE MANAGEMENT
     Route: 048
     Dates: start: 2015
  2. LABIRIN (LABIRIN) [Concomitant]
  3. LEXOTAN (LEXOTAN) [Concomitant]
  4. ATENOLOL 25 MG [Suspect]
     Active Substance: ATENOLOL
     Indication: HYPERTENSION
     Route: 048
     Dates: start: 20151002
  5. ATENOLOL 50 MG [Suspect]
     Active Substance: ATENOLOL
     Indication: HYPERTENSION
     Route: 048
     Dates: start: 20151002
  6. SOMALGIN (SOMALGIN) [Concomitant]

REACTIONS (5)
  - Cerebrovascular accident [None]
  - Drug ineffective [None]
  - Fatigue [None]
  - Incorrect dose administered [None]
  - Hypertension [None]

NARRATIVE: CASE EVENT DATE: 201510
